FAERS Safety Report 10056909 (Version 4)
Quarter: 2014Q2

REPORT INFORMATION
  Report Type: Report from Study
  Country: CA (occurrence: CA)
  Receive Date: 20140403
  Receipt Date: 20140626
  Transmission Date: 20141212
  Serious: Yes (Hospitalization)
  Sender: FDA-Public Use
  Company Number: CA-JNJFOC-20131113313

PATIENT
  Age: 26 Year
  Sex: Female
  Weight: 89.81 kg

DRUGS (6)
  1. REMICADE [Suspect]
     Indication: CROHN^S DISEASE
     Route: 042
  2. REMICADE [Suspect]
     Indication: CROHN^S DISEASE
     Route: 042
     Dates: start: 20140203
  3. REMICADE [Suspect]
     Indication: CROHN^S DISEASE
     Route: 042
     Dates: start: 20130509
  4. REMICADE [Suspect]
     Indication: CROHN^S DISEASE
     Route: 042
     Dates: start: 20130509
  5. CITALOPRAM [Concomitant]
     Route: 065
  6. PREDNISONE [Concomitant]
     Route: 065

REACTIONS (5)
  - Intestinal resection [Recovering/Resolving]
  - Pain [Unknown]
  - Intestinal obstruction [Unknown]
  - Crohn^s disease [Recovering/Resolving]
  - Drug ineffective [Recovering/Resolving]
